FAERS Safety Report 7202015-7 (Version None)
Quarter: 2010Q4

REPORT INFORMATION
  Report Type: 
  Country: None (occurrence: None)
  Receive Date: 20101229
  Receipt Date: 20101222
  Transmission Date: 20110411
  Serious: Yes (Other)
  Sender: FDA-Public Use
  Company Number: DE-BAXTER-2010BH030756

PATIENT
  Age: 7 Year
  Sex: Female

DRUGS (35)
  1. CYCLOPHOSPHAMIDE [Suspect]
     Indication: ATAXIA TELANGIECTASIA
     Route: 065
  2. CYCLOPHOSPHAMIDE [Suspect]
     Indication: ACUTE LYMPHOCYTIC LEUKAEMIA
     Route: 065
  3. CYCLOPHOSPHAMIDE [Suspect]
     Route: 065
  4. CYCLOPHOSPHAMIDE [Suspect]
     Route: 065
  5. VINCRISTINE SULFATE [Suspect]
     Indication: ATAXIA TELANGIECTASIA
     Route: 065
  6. VINCRISTINE SULFATE [Suspect]
     Indication: ACUTE LYMPHOCYTIC LEUKAEMIA
     Route: 065
  7. VINCRISTINE SULFATE [Suspect]
     Route: 065
  8. VINCRISTINE SULFATE [Suspect]
     Route: 065
  9. DAUNORUBICIN HCL [Suspect]
     Indication: ATAXIA TELANGIECTASIA
     Route: 065
  10. DAUNORUBICIN HCL [Suspect]
     Indication: ACUTE LYMPHOCYTIC LEUKAEMIA
     Route: 065
  11. ELSPAR [Suspect]
     Indication: ATAXIA TELANGIECTASIA
     Route: 065
  12. ELSPAR [Suspect]
     Indication: ACUTE LYMPHOCYTIC LEUKAEMIA
     Route: 065
  13. METHOTREXATE [Suspect]
     Indication: ATAXIA TELANGIECTASIA
     Route: 037
  14. METHOTREXATE [Suspect]
     Indication: ACUTE LYMPHOCYTIC LEUKAEMIA
     Route: 037
  15. METHOTREXATE [Suspect]
     Route: 065
  16. METHOTREXATE [Suspect]
     Route: 065
  17. METHOTREXATE [Suspect]
     Route: 037
  18. METHOTREXATE [Suspect]
     Route: 037
  19. METHOTREXATE [Suspect]
     Route: 037
  20. METHOTREXATE [Suspect]
     Route: 037
  21. CYTARABINE [Suspect]
     Indication: ATAXIA TELANGIECTASIA
     Route: 065
  22. CYTARABINE [Suspect]
     Indication: ACUTE LYMPHOCYTIC LEUKAEMIA
     Route: 065
  23. CYTARABINE [Suspect]
     Route: 065
  24. CYTARABINE [Suspect]
     Route: 065
  25. MERCAPTOPURINE [Suspect]
     Indication: ATAXIA TELANGIECTASIA
     Route: 065
  26. MERCAPTOPURINE [Suspect]
     Indication: ACUTE LYMPHOCYTIC LEUKAEMIA
     Route: 065
  27. DOXORUBICIN HCL [Suspect]
     Indication: ATAXIA TELANGIECTASIA
     Route: 065
  28. DOXORUBICIN HCL [Suspect]
     Indication: ACUTE LYMPHOCYTIC LEUKAEMIA
     Route: 065
  29. THIOGUANINE [Suspect]
     Indication: ATAXIA TELANGIECTASIA
     Route: 065
  30. THIOGUANINE [Suspect]
     Indication: ACUTE LYMPHOCYTIC LEUKAEMIA
     Route: 065
  31. DEXAMETHASONE [Suspect]
     Indication: ATAXIA TELANGIECTASIA
     Route: 065
  32. DEXAMETHASONE [Suspect]
     Indication: ACUTE LYMPHOCYTIC LEUKAEMIA
     Route: 065
  33. IMMUNOGLOBULINS [Concomitant]
     Indication: ACUTE LYMPHOCYTIC LEUKAEMIA
     Route: 065
  34. TRIMETHOPRIM [Concomitant]
     Indication: PROPHYLAXIS
     Route: 065
  35. PREDNISONE [Concomitant]
     Indication: LYMPHOCYTIC LEUKAEMIA
     Route: 048

REACTIONS (8)
  - CANDIDA PNEUMONIA [None]
  - CONVULSION [None]
  - ENCEPHALITIS [None]
  - GASTROENTERITIS [None]
  - MUTISM [None]
  - RESPIRATORY TRACT INFECTION [None]
  - SEPSIS [None]
  - VENOUS THROMBOSIS [None]
